FAERS Safety Report 9967793 (Version 1)
Quarter: 2014Q1

REPORT INFORMATION
  Report Type: Report from Study
  Country: US (occurrence: US)
  Receive Date: 20140306
  Receipt Date: 20140306
  Transmission Date: 20141002
  Serious: No
  Sender: FDA-Public Use
  Company Number: US-ABBVIE-13P-163-1144861-00

PATIENT
  Age: 57 Year
  Sex: Female
  Weight: 103.06 kg

DRUGS (10)
  1. HUMIRA [Suspect]
     Indication: RHEUMATOID ARTHRITIS
     Dates: start: 20130421
  2. METFORMIN [Concomitant]
     Indication: DIABETES MELLITUS
  3. PREDNISONE [Concomitant]
     Indication: RHEUMATOID ARTHRITIS
  4. LISINOPRIL [Concomitant]
     Indication: HYPERTENSION
  5. ESTRADIOL [Concomitant]
     Indication: HORMONE REPLACEMENT THERAPY
  6. SIMVASTATIN [Concomitant]
     Indication: BLOOD CHOLESTEROL INCREASED
  7. GLIPIZIDE [Concomitant]
     Indication: DIABETES MELLITUS
  8. TEMAZEPAM [Concomitant]
     Indication: INSOMNIA
  9. NIACIN [Concomitant]
     Indication: BLOOD CHOLESTEROL INCREASED
  10. OXYCODONE [Concomitant]
     Indication: PAIN

REACTIONS (5)
  - Weight increased [Not Recovered/Not Resolved]
  - Increased appetite [Unknown]
  - Wrong technique in drug usage process [Unknown]
  - Injection site erythema [Not Recovered/Not Resolved]
  - Injection site swelling [Not Recovered/Not Resolved]
